FAERS Safety Report 15678124 (Version 1)
Quarter: 2018Q4

REPORT INFORMATION
  Report Type: Report from Study
  Country: US (occurrence: US)
  Receive Date: 20181201
  Receipt Date: 20181201
  Transmission Date: 20190205
  Serious: Yes (Other)
  Sender: FDA-Public Use
  Company Number: US-AUROBINDO-AUR-APL-2018-057375

PATIENT

DRUGS (1)
  1. QUETIAPINE. [Suspect]
     Active Substance: QUETIAPINE
     Indication: PRODUCT USED FOR UNKNOWN INDICATION
     Dosage: 14.7 MILLIGRAM/KILOGRAM
     Route: 065

REACTIONS (5)
  - Somnolence [Unknown]
  - Tachycardia [Unknown]
  - Hypertension [Unknown]
  - Accidental exposure to product [Unknown]
  - Respiratory depression [Unknown]
